FAERS Safety Report 13290073 (Version 1)
Quarter: 2017Q1

REPORT INFORMATION
  Report Type: Spontaneous
  Country: US (occurrence: US)
  Receive Date: 20170303
  Receipt Date: 20170303
  Transmission Date: 20170428
  Serious: Yes (Hospitalization, Other)
  Sender: FDA-Public Use
  Company Number: US-MACLEODS PHARMACEUTICALS US LTD-MAC2017004375

PATIENT

DRUGS (4)
  1. CLOPIDOGREL [Suspect]
     Active Substance: CLOPIDOGREL BISULFATE
     Indication: ANTIPLATELET THERAPY
     Dosage: UNK
     Route: 065
  2. ASPIRIN. [Suspect]
     Active Substance: ASPIRIN
     Indication: ANTIPLATELET THERAPY
     Dosage: UNK
     Route: 065
  3. CEPHALEXIN. [Concomitant]
     Active Substance: CEPHALEXIN
     Indication: PRODUCT USED FOR UNKNOWN INDICATION
     Dosage: UNK, POSTOPERATIVE
     Route: 048
  4. CEFAZOLIN [Concomitant]
     Active Substance: CEFAZOLIN
     Indication: PRODUCT USED FOR UNKNOWN INDICATION
     Dosage: UNK, PERIOPERATIVE
     Route: 042

REACTIONS (10)
  - Implant site swelling [Recovering/Resolving]
  - Incision site pain [Recovering/Resolving]
  - Incision site ulcer [Recovering/Resolving]
  - Implant site warmth [Recovering/Resolving]
  - Implant site infection [Recovering/Resolving]
  - Implant site haematoma [Unknown]
  - Implant site pain [Recovering/Resolving]
  - Incision site swelling [Recovering/Resolving]
  - Bacteraemia [Recovering/Resolving]
  - Purulent discharge [Recovering/Resolving]
